FAERS Safety Report 6202828-4 (Version None)
Quarter: 2009Q2

REPORT INFORMATION
  Report Type: 
  Country: None (occurrence: None)
  Receive Date: 20090520
  Receipt Date: 20090512
  Transmission Date: 20091009
  Serious: Yes (Hospitalization)
  Sender: FDA-Public Use
  Company Number: GXKR2009GB05757

PATIENT
  Age: 86 Year
  Sex: Male
  Weight: 80 kg

DRUGS (10)
  1. AMISULPRIDE (NGX) (AMISULPRIDE) UNKNOWN [Suspect]
     Indication: BIPOLAR I DISORDER
     Dosage: 50 MG, BID, ORAL
     Route: 048
     Dates: start: 20090427, end: 20090506
  2. WARFARIN SODIUM [Suspect]
     Dates: start: 20081106
  3. ATENOLOL (ATGENOLOL) [Concomitant]
  4. FUSIDIC ACID [Concomitant]
  5. BETAMETHASONE [Concomitant]
  6. CALCIUM W/COLECALCIFEROL (CALCIUM, COLECALCIFEROL) [Concomitant]
  7. DIETHYLSTILBESTROL [Concomitant]
  8. GOSERELIN (GOSERELIN) [Concomitant]
  9. MICRALAX (SODIUM CITRATE, SODIUM LAURYL SULFOACETATE) [Concomitant]
  10. MIRTAZAPINE [Concomitant]

REACTIONS (2)
  - DRUG INTERACTION [None]
  - INTERNATIONAL NORMALISED RATIO INCREASED [None]
